FAERS Safety Report 9386042 (Version 2)
Quarter: 2013Q3

REPORT INFORMATION
  Report Type: Report from Study
  Country: FR (occurrence: FR)
  Receive Date: 20130705
  Receipt Date: 20130917
  Transmission Date: 20140515
  Serious: Yes (Other)
  Sender: FDA-Public Use
  Company Number: PHHY2013FR070897

PATIENT
  Age: 67 Year
  Sex: Male

DRUGS (4)
  1. MYCOPHENOLIC ACID [Suspect]
     Indication: RENAL TRANSPLANT
     Dosage: UNK UKN, UNK
     Dates: start: 20100623
  2. NEORAL [Suspect]
     Indication: RENAL TRANSPLANT
     Dosage: UNK UKN, UNK
     Dates: start: 20110228
  3. SOLUPRED [Concomitant]
     Dosage: UNK UKN, UNK
     Dates: start: 20100416
  4. EUPRESSYL [Concomitant]
     Indication: HYPERTENSION
     Dosage: 60 MG, UNK
     Dates: start: 20120416

REACTIONS (2)
  - Diabetic retinopathy [Unknown]
  - Diabetes mellitus [Unknown]
